FAERS Safety Report 7336438-2 (Version None)
Quarter: 2011Q1

REPORT INFORMATION
  Report Type: 
  Country: None (occurrence: None)
  Receive Date: 20110307
  Receipt Date: 20110302
  Transmission Date: 20110831
  Serious: Yes (Other)
  Sender: FDA-Public Use
  Company Number: US-PFIZER INC-2010159979

PATIENT
  Sex: Female
  Weight: 81.633 kg

DRUGS (2)
  1. EFFEXOR [Suspect]
     Indication: ANXIETY
  2. EFFEXOR [Suspect]
     Indication: DEPRESSION
     Dosage: 75 MG, 1X/DAY
     Route: 048
     Dates: start: 20090101, end: 20101128

REACTIONS (6)
  - DIZZINESS [None]
  - MALAISE [None]
  - HYPOTHYROIDISM [None]
  - HEAD DISCOMFORT [None]
  - DRUG WITHDRAWAL SYNDROME [None]
  - NAUSEA [None]
